FAERS Safety Report 17125125 (Version 1)
Quarter: 2019Q4

REPORT INFORMATION
  Report Type: Spontaneous
  Country: CA (occurrence: CA)
  Receive Date: 20191206
  Receipt Date: 20191206
  Transmission Date: 20200122
  Serious: Yes (Other)
  Sender: FDA-Public Use
  Company Number: CA-B.BRAUN MEDICAL INC.-2077577

PATIENT
  Sex: Female

DRUGS (3)
  1. SODIUM CHLORIDE INJECTION USP 0264-7800-09 [Suspect]
     Active Substance: SODIUM CHLORIDE
     Indication: IRON DEFICIENCY ANAEMIA
     Route: 042
  2. VENOFER [Suspect]
     Active Substance: IRON SUCROSE
     Route: 042
  3. VENOFER [Suspect]
     Active Substance: IRON SUCROSE
     Route: 042

REACTIONS (2)
  - Hypotension [Unknown]
  - Back pain [Unknown]
